FAERS Safety Report 24735761 (Version 1)
Quarter: 2024Q4

REPORT INFORMATION
  Report Type: Spontaneous
  Country: CA (occurrence: CA)
  Receive Date: 20241216
  Receipt Date: 20241216
  Transmission Date: 20250115
  Serious: Yes (Death, Other)
  Sender: BRISTOL-MYERS SQUIBB COMPANY
  Company Number: CA-BRISTOL-MYERS SQUIBB COMPANY-2024-194170

PATIENT
  Age: 44 Year
  Sex: Female

DRUGS (350)
  1. ORENCIA [Suspect]
     Active Substance: ABATACEPT
     Indication: Rheumatoid arthritis
     Route: 042
  2. ORENCIA [Suspect]
     Active Substance: ABATACEPT
     Route: 042
  3. ORENCIA [Suspect]
     Active Substance: ABATACEPT
     Indication: Rheumatoid arthritis
     Route: 058
  4. ORENCIA [Suspect]
     Active Substance: ABATACEPT
     Route: 058
  5. ORENCIA [Suspect]
     Active Substance: ABATACEPT
     Indication: Rheumatoid arthritis
     Route: 015
  6. ORENCIA [Suspect]
     Active Substance: ABATACEPT
  7. ACETAMINOPHEN [Concomitant]
     Active Substance: ACETAMINOPHEN
     Indication: Rheumatoid arthritis
     Route: 048
  8. ACETAMINOPHEN [Concomitant]
     Active Substance: ACETAMINOPHEN
     Indication: Pyrexia
     Route: 058
  9. ACETAMINOPHEN [Concomitant]
     Active Substance: ACETAMINOPHEN
     Indication: Pain
  10. CAFFEINE;CODEINE;DIPHENHYDRAMINE;PARACETAMOL [Concomitant]
     Indication: Rheumatoid arthritis
     Route: 048
  11. ASCORBIC ACID [Concomitant]
     Active Substance: ASCORBIC ACID
     Indication: Product used for unknown indication
  12. ACTEMRA [Concomitant]
     Active Substance: TOCILIZUMAB
     Indication: Rheumatoid arthritis
  13. ACTEMRA [Concomitant]
     Active Substance: TOCILIZUMAB
  14. ACTEMRA [Concomitant]
     Active Substance: TOCILIZUMAB
     Route: 016
  15. ACTEMRA [Concomitant]
     Active Substance: TOCILIZUMAB
     Route: 042
  16. ACTEMRA [Concomitant]
     Active Substance: TOCILIZUMAB
     Route: 042
  17. ACTEMRA [Concomitant]
     Active Substance: TOCILIZUMAB
     Route: 058
  18. ACTEMRA [Concomitant]
     Active Substance: TOCILIZUMAB
     Route: 048
  19. ACTEMRA [Concomitant]
     Active Substance: TOCILIZUMAB
  20. ACTEMRA [Concomitant]
     Active Substance: TOCILIZUMAB
     Route: 058
  21. ACTEMRA [Concomitant]
     Active Substance: TOCILIZUMAB
  22. ADALIMUMAB [Concomitant]
     Active Substance: ADALIMUMAB
     Indication: Rheumatoid arthritis
     Route: 058
  23. ADALIMUMAB [Concomitant]
     Active Substance: ADALIMUMAB
     Indication: Psoriatic arthropathy
     Route: 042
  24. ADALIMUMAB [Concomitant]
     Active Substance: ADALIMUMAB
  25. ADALIMUMAB [Concomitant]
     Active Substance: ADALIMUMAB
  26. ALENDRONATE SODIUM [Concomitant]
     Active Substance: ALENDRONATE SODIUM
     Indication: Rheumatoid arthritis
     Route: 058
  27. ALENDRONATE SODIUM [Concomitant]
     Active Substance: ALENDRONATE SODIUM
     Route: 016
  28. ALENDRONATE SODIUM [Concomitant]
     Active Substance: ALENDRONATE SODIUM
     Route: 048
  29. ALENDRONATE SODIUM [Concomitant]
     Active Substance: ALENDRONATE SODIUM
  30. ALENDRONATE SODIUM\CHOLECALCIFEROL [Concomitant]
     Active Substance: ALENDRONATE SODIUM\CHOLECALCIFEROL
     Indication: Product used for unknown indication
     Route: 058
  31. ALENDRONIC ACID [Concomitant]
     Active Substance: ALENDRONIC ACID
     Indication: Rheumatoid arthritis
     Route: 048
  32. DICLOFENAC POTASSIUM [Concomitant]
     Active Substance: DICLOFENAC POTASSIUM
     Indication: Rheumatoid arthritis
  33. DICLOFENAC POTASSIUM [Concomitant]
     Active Substance: DICLOFENAC POTASSIUM
     Route: 048
  34. DICLOFENAC POTASSIUM [Concomitant]
     Active Substance: DICLOFENAC POTASSIUM
  35. DICLOFENAC POTASSIUM [Concomitant]
     Active Substance: DICLOFENAC POTASSIUM
     Route: 047
  36. PREDNISONE [Concomitant]
     Active Substance: PREDNISONE
     Indication: Rheumatoid arthritis
     Route: 048
  37. PREDNISONE [Concomitant]
     Active Substance: PREDNISONE
     Indication: Systemic lupus erythematosus
     Route: 048
  38. PREDNISONE [Concomitant]
     Active Substance: PREDNISONE
     Indication: Synovitis
  39. PREDNISONE [Concomitant]
     Active Substance: PREDNISONE
     Indication: Psoriatic arthropathy
     Route: 048
  40. PREDNISONE [Concomitant]
     Active Substance: PREDNISONE
     Indication: Pemphigus
  41. PREDNISONE [Concomitant]
     Active Substance: PREDNISONE
     Indication: Inflammation
  42. PREDNISONE [Concomitant]
     Active Substance: PREDNISONE
     Indication: Condition aggravated
  43. PREDNISONE [Concomitant]
     Active Substance: PREDNISONE
     Indication: Bursitis
  44. ARAVA [Concomitant]
     Active Substance: LEFLUNOMIDE
     Indication: Rheumatoid arthritis
     Route: 005
  45. ARAVA [Concomitant]
     Active Substance: LEFLUNOMIDE
     Route: 048
  46. ARAVA [Concomitant]
     Active Substance: LEFLUNOMIDE
  47. ARAVA [Concomitant]
     Active Substance: LEFLUNOMIDE
  48. ARAVA [Concomitant]
     Active Substance: LEFLUNOMIDE
  49. ARAVA [Concomitant]
     Active Substance: LEFLUNOMIDE
  50. ASACOL [Concomitant]
     Active Substance: MESALAMINE
     Indication: Crohn^s disease
  51. ACETAMINOPHEN [Concomitant]
     Active Substance: ACETAMINOPHEN
     Indication: Product used for unknown indication
     Route: 048
  52. ATIVAN [Concomitant]
     Active Substance: LORAZEPAM
     Indication: Rheumatoid arthritis
  53. AZATHIOPRINE [Concomitant]
     Active Substance: AZATHIOPRINE
     Indication: Rheumatoid arthritis
     Route: 058
  54. CAFFEINE [Concomitant]
     Active Substance: CAFFEINE
     Indication: Rheumatoid arthritis
  55. CAFFEINE CITRATE [Concomitant]
     Active Substance: CAFFEINE CITRATE
     Indication: Product used for unknown indication
     Route: 048
  56. CALCIUM [Concomitant]
     Active Substance: CALCIUM
     Indication: Product used for unknown indication
  57. CALCIUM CARBONATE\CHOLECALCIFEROL [Concomitant]
     Active Substance: CALCIUM CARBONATE\CHOLECALCIFEROL
     Indication: Product used for unknown indication
  58. CALCIUM CARBONATE [Concomitant]
     Active Substance: CALCIUM CARBONATE
     Indication: Product used for unknown indication
  59. CALCIUM GLUBIONATE [Concomitant]
     Active Substance: CALCIUM GLUBIONATE
     Indication: Product used for unknown indication
  60. CALCIUM GLUBIONATE [Concomitant]
     Active Substance: CALCIUM GLUBIONATE
     Route: 016
  61. CALCIUM LACTATE [Concomitant]
     Active Substance: CALCIUM LACTATE
     Indication: Product used for unknown indication
  62. CALCIUM LACTATE [Concomitant]
     Active Substance: CALCIUM LACTATE
     Route: 016
  63. CELEBREX [Concomitant]
     Active Substance: CELECOXIB
     Indication: Rheumatoid arthritis
     Route: 048
  64. CELEBREX [Concomitant]
     Active Substance: CELECOXIB
     Route: 048
  65. CELEBREX [Concomitant]
     Active Substance: CELECOXIB
     Route: 048
  66. CELEBREX [Concomitant]
     Active Substance: CELECOXIB
     Route: 048
  67. CELEBREX [Concomitant]
     Active Substance: CELECOXIB
  68. CELEBREX [Concomitant]
     Active Substance: CELECOXIB
  69. CELEBREX [Concomitant]
     Active Substance: CELECOXIB
     Route: 048
  70. CETIRIZINE [Concomitant]
     Active Substance: CETIRIZINE HYDROCHLORIDE
     Indication: Rheumatoid arthritis
     Route: 048
  71. CETIRIZINE [Concomitant]
     Active Substance: CETIRIZINE HYDROCHLORIDE
     Route: 048
  72. CETIRIZINE [Concomitant]
     Active Substance: CETIRIZINE HYDROCHLORIDE
  73. CETIRIZINE [Concomitant]
     Active Substance: CETIRIZINE HYDROCHLORIDE
     Route: 048
  74. CETIRIZINE [Concomitant]
     Active Substance: CETIRIZINE HYDROCHLORIDE
     Route: 016
  75. CETIRIZINE [Concomitant]
     Active Substance: CETIRIZINE HYDROCHLORIDE
  76. CETIRIZINE [Concomitant]
     Active Substance: CETIRIZINE HYDROCHLORIDE
     Route: 048
  77. CHLORAPREP [Concomitant]
     Active Substance: CHLORHEXIDINE GLUCONATE\ISOPROPYL ALCOHOL
     Indication: Rheumatoid arthritis
     Route: 058
  78. CHLORAPREP [Concomitant]
     Active Substance: CHLORHEXIDINE GLUCONATE\ISOPROPYL ALCOHOL
     Route: 061
  79. CHLORHEXIDINE [Concomitant]
     Active Substance: CHLORHEXIDINE
     Indication: Rheumatoid arthritis
     Route: 061
  80. CHLORHEXIDINE [Concomitant]
     Active Substance: CHLORHEXIDINE
     Route: 002
  81. CHLORHEXIDINE [Concomitant]
     Active Substance: CHLORHEXIDINE
     Route: 048
  82. CHLORHEXIDINE [Concomitant]
     Active Substance: CHLORHEXIDINE
     Route: 058
  83. CHLORHEXIDINE [Concomitant]
     Active Substance: CHLORHEXIDINE
  84. CHOLECALCIFEROL [Concomitant]
     Active Substance: CHOLECALCIFEROL
     Indication: Rheumatoid arthritis
  85. CHOLECALCIFEROL [Concomitant]
     Active Substance: CHOLECALCIFEROL
     Route: 016
  86. CIMZIA [Concomitant]
     Active Substance: CERTOLIZUMAB PEGOL
     Indication: Rheumatoid arthritis
     Route: 058
  87. CIMZIA [Concomitant]
     Active Substance: CERTOLIZUMAB PEGOL
     Indication: Psoriasis
     Route: 058
  88. CIMZIA [Concomitant]
     Active Substance: CERTOLIZUMAB PEGOL
     Route: 005
  89. CIMZIA [Concomitant]
     Active Substance: CERTOLIZUMAB PEGOL
     Route: 058
  90. CIMZIA [Concomitant]
     Active Substance: CERTOLIZUMAB PEGOL
     Route: 058
  91. CIMZIA [Concomitant]
     Active Substance: CERTOLIZUMAB PEGOL
     Route: 058
  92. CODEINE [Concomitant]
     Active Substance: CODEINE
     Indication: Product used for unknown indication
  93. CODEINE PHOSPHATE [Concomitant]
     Active Substance: CODEINE PHOSPHATE
     Indication: Rheumatoid arthritis
  94. CORTISONE ACETATE [Concomitant]
     Active Substance: CORTISONE ACETATE
     Indication: Rheumatoid arthritis
     Route: 061
  95. CORTISONE ACETATE [Concomitant]
     Active Substance: CORTISONE ACETATE
     Route: 061
  96. CORTISONE ACETATE [Concomitant]
     Active Substance: CORTISONE ACETATE
     Route: 048
  97. CORTISONE ACETATE [Concomitant]
     Active Substance: CORTISONE ACETATE
  98. COSENTYX [Concomitant]
     Active Substance: SECUKINUMAB
     Indication: Rheumatoid arthritis
     Route: 005
  99. COSENTYX [Concomitant]
     Active Substance: SECUKINUMAB
     Indication: Psoriatic arthropathy
     Route: 048
  100. COSENTYX [Concomitant]
     Active Substance: SECUKINUMAB
  101. DESOXIMETASONE [Concomitant]
     Active Substance: DESOXIMETASONE
     Indication: Rheumatoid arthritis
     Route: 048
  102. DESOXIMETASONE [Concomitant]
     Active Substance: DESOXIMETASONE
     Route: 048
  103. DESOXIMETASONE [Concomitant]
     Active Substance: DESOXIMETASONE
  104. DESOXIMETASONE [Concomitant]
     Active Substance: DESOXIMETASONE
     Route: 048
  105. DESOXIMETASONE [Concomitant]
     Active Substance: DESOXIMETASONE
     Route: 067
  106. DESOXIMETASONE [Concomitant]
     Active Substance: DESOXIMETASONE
  107. DESOXIMETASONE [Concomitant]
     Active Substance: DESOXIMETASONE
     Route: 016
  108. DESOXIMETASONE [Concomitant]
     Active Substance: DESOXIMETASONE
     Route: 042
  109. DESOXIMETASONE [Concomitant]
     Active Substance: DESOXIMETASONE
     Route: 003
  110. DESOXIMETASONE [Concomitant]
     Active Substance: DESOXIMETASONE
  111. DESOXIMETASONE [Concomitant]
     Active Substance: DESOXIMETASONE
     Route: 061
  112. DESOXIMETASONE [Concomitant]
     Active Substance: DESOXIMETASONE
     Route: 058
  113. DICLOFENAC [Concomitant]
     Active Substance: DICLOFENAC
     Indication: Product used for unknown indication
  114. DICLOFENAC POTASSIUM [Concomitant]
     Active Substance: DICLOFENAC POTASSIUM
     Indication: Rheumatoid arthritis
  115. DICLOFENAC POTASSIUM [Concomitant]
     Active Substance: DICLOFENAC POTASSIUM
     Route: 048
  116. DICLOFENAC POTASSIUM [Concomitant]
     Active Substance: DICLOFENAC POTASSIUM
  117. DICLOFENAC POTASSIUM [Concomitant]
     Active Substance: DICLOFENAC POTASSIUM
     Route: 048
  118. DICLOFENAC SODIUM [Concomitant]
     Active Substance: DICLOFENAC SODIUM
     Indication: Rheumatoid arthritis
     Route: 047
  119. DICLOFENAC SODIUM [Concomitant]
     Active Substance: DICLOFENAC SODIUM
     Route: 047
  120. DICLOFENAC SODIUM [Concomitant]
     Active Substance: DICLOFENAC SODIUM
     Route: 058
  121. DILTIAZEM [Concomitant]
     Active Substance: DILTIAZEM
     Indication: Product used for unknown indication
  122. DILTIAZEM HYDROCHLORIDE [Concomitant]
     Active Substance: DILTIAZEM HYDROCHLORIDE
     Indication: Product used for unknown indication
     Route: 042
  123. DIPHENHYDRAMINE [Concomitant]
     Active Substance: DIPHENHYDRAMINE
     Indication: Product used for unknown indication
  124. DOXYCYCLINE [Concomitant]
     Active Substance: DOXYCYCLINE
     Indication: Rheumatoid arthritis
     Route: 005
  125. DOXYCYCLINE HYCLATE [Concomitant]
     Active Substance: DOXYCYCLINE HYCLATE
     Indication: Rheumatoid arthritis
     Route: 058
  126. EMEND [Concomitant]
     Active Substance: APREPITANT
     Indication: Rheumatoid arthritis
     Route: 048
  127. EMEND [Concomitant]
     Active Substance: APREPITANT
  128. ENBREL [Concomitant]
     Active Substance: ETANERCEPT
     Indication: Rheumatoid arthritis
     Route: 058
  129. ENBREL [Concomitant]
     Active Substance: ETANERCEPT
     Indication: Psoriatic arthropathy
     Route: 058
  130. ENBREL [Concomitant]
     Active Substance: ETANERCEPT
     Route: 058
  131. ENBREL [Concomitant]
     Active Substance: ETANERCEPT
     Route: 058
  132. ENBREL [Concomitant]
     Active Substance: ETANERCEPT
     Route: 058
  133. ENBREL [Concomitant]
     Active Substance: ETANERCEPT
     Route: 058
  134. ENTYVIO [Concomitant]
     Active Substance: VEDOLIZUMAB
     Indication: Product used for unknown indication
  135. ERELZI [Concomitant]
     Active Substance: ETANERCEPT-SZZS
     Indication: Rheumatoid arthritis
     Route: 058
  136. ERELZI [Concomitant]
     Active Substance: ETANERCEPT-SZZS
  137. ERELZI [Concomitant]
     Active Substance: ETANERCEPT-SZZS
     Route: 058
  138. ERGOCALCIFEROL [Concomitant]
     Active Substance: ERGOCALCIFEROL
     Indication: Rheumatoid arthritis
  139. ETANERCEPT [Concomitant]
     Active Substance: ETANERCEPT
     Indication: Rheumatoid arthritis
  140. ETHINYL ESTRADIOL\NORETHINDRONE ACETATE [Concomitant]
     Active Substance: ETHINYL ESTRADIOL\NORETHINDRONE ACETATE
     Indication: Rheumatoid arthritis
  141. GLUCOSAMINE [Concomitant]
     Active Substance: GLUCOSAMINE
     Indication: Rheumatoid arthritis
     Route: 048
  142. FOLIC ACID [Concomitant]
     Active Substance: FOLIC ACID
     Indication: Rheumatoid arthritis
  143. FOLIC ACID [Concomitant]
     Active Substance: FOLIC ACID
     Route: 016
  144. FOLIC ACID [Concomitant]
     Active Substance: FOLIC ACID
  145. FOLIC ACID [Concomitant]
     Active Substance: FOLIC ACID
     Route: 048
  146. FOLIC ACID [Concomitant]
     Active Substance: FOLIC ACID
     Route: 048
  147. FOLIC ACID [Concomitant]
     Active Substance: FOLIC ACID
  148. FOLIC ACID [Concomitant]
     Active Substance: FOLIC ACID
     Route: 048
  149. FOLIC ACID [Concomitant]
     Active Substance: FOLIC ACID
     Route: 058
  150. FOLIC ACID [Concomitant]
     Active Substance: FOLIC ACID
     Route: 048
  151. FOLIC ACID [Concomitant]
     Active Substance: FOLIC ACID
     Route: 048
  152. FOLIC ACID [Concomitant]
     Active Substance: FOLIC ACID
  153. FOLIC ACID [Concomitant]
     Active Substance: FOLIC ACID
  154. FOSAMAX [Concomitant]
     Active Substance: ALENDRONATE SODIUM
     Indication: Rheumatoid arthritis
     Route: 005
  155. FOSAMAX [Concomitant]
     Active Substance: ALENDRONATE SODIUM
     Route: 048
  156. FOSAMAX [Concomitant]
     Active Substance: ALENDRONATE SODIUM
  157. FOSAMAX [Concomitant]
     Active Substance: ALENDRONATE SODIUM
     Route: 016
  158. FOSAMAX [Concomitant]
     Active Substance: ALENDRONATE SODIUM
     Route: 048
  159. FOSAMAX [Concomitant]
     Active Substance: ALENDRONATE SODIUM
  160. FOSAMAX [Concomitant]
     Active Substance: ALENDRONATE SODIUM
     Route: 048
  161. FOSAMAX [Concomitant]
     Active Substance: ALENDRONATE SODIUM
     Route: 016
  162. FOSAMAX [Concomitant]
     Active Substance: ALENDRONATE SODIUM
     Route: 058
  163. HUMIRA [Concomitant]
     Active Substance: ADALIMUMAB
     Indication: Rheumatoid arthritis
     Route: 058
  164. HUMIRA [Concomitant]
     Active Substance: ADALIMUMAB
     Indication: Psoriatic arthropathy
     Route: 058
  165. HUMIRA [Concomitant]
     Active Substance: ADALIMUMAB
     Route: 058
  166. HUMIRA [Concomitant]
     Active Substance: ADALIMUMAB
     Route: 058
  167. HUMIRA [Concomitant]
     Active Substance: ADALIMUMAB
     Route: 058
  168. HYALURONIDASE [Concomitant]
     Active Substance: HYALURONIDASE
     Indication: Product used for unknown indication
  169. HYDROCORTISONE [Concomitant]
     Active Substance: HYDROCORTISONE
     Indication: Rheumatoid arthritis
     Route: 061
  170. HYDROCORTISONE [Concomitant]
     Active Substance: HYDROCORTISONE
     Route: 058
  171. HYDROCORTISONE [Concomitant]
     Active Substance: HYDROCORTISONE
  172. HYDROCORTISONE [Concomitant]
     Active Substance: HYDROCORTISONE
     Route: 003
  173. HYDROCORTISONE [Concomitant]
     Active Substance: HYDROCORTISONE
     Route: 048
  174. HYDROCORTISONE ACETATE [Concomitant]
     Active Substance: HYDROCORTISONE ACETATE
     Indication: Rheumatoid arthritis
     Route: 058
  175. HYDROCORTISONE ACETATE [Concomitant]
     Active Substance: HYDROCORTISONE ACETATE
     Route: 058
  176. HYDROCORTISONE ACETATE [Concomitant]
     Active Substance: HYDROCORTISONE ACETATE
  177. HYDROCORTISONE ACETATE [Concomitant]
     Active Substance: HYDROCORTISONE ACETATE
     Route: 003
  178. HYDROCORTISONE ACETATE [Concomitant]
     Active Substance: HYDROCORTISONE ACETATE
     Route: 048
  179. HYDROCORTISONE ACETATE [Concomitant]
     Active Substance: HYDROCORTISONE ACETATE
     Route: 048
  180. HYALURONIDASE [Concomitant]
     Active Substance: HYALURONIDASE
     Indication: Product used for unknown indication
  181. HYDROCORTISONE [Concomitant]
     Active Substance: HYDROCORTISONE
     Indication: Rheumatoid arthritis
     Route: 061
  182. HYDROCORTISONE [Concomitant]
     Active Substance: HYDROCORTISONE
  183. HYDROCORTISONE [Concomitant]
     Active Substance: HYDROCORTISONE
     Route: 058
  184. HYDROCORTISONE [Concomitant]
     Active Substance: HYDROCORTISONE
     Route: 003
  185. HYDROCORTISONE [Concomitant]
     Active Substance: HYDROCORTISONE
     Route: 048
  186. HYDROCORTISONE ACETATE [Concomitant]
     Active Substance: HYDROCORTISONE ACETATE
     Indication: Rheumatoid arthritis
     Route: 058
  187. HYDROCORTISONE ACETATE [Concomitant]
     Active Substance: HYDROCORTISONE ACETATE
  188. HYDROCORTISONE ACETATE [Concomitant]
     Active Substance: HYDROCORTISONE ACETATE
     Route: 048
  189. HYDROCORTISONE ACETATE [Concomitant]
     Active Substance: HYDROCORTISONE ACETATE
     Route: 058
  190. HYDROCORTISONE ACETATE [Concomitant]
     Active Substance: HYDROCORTISONE ACETATE
     Route: 003
  191. HYDROCORTISONE ACETATE [Concomitant]
     Active Substance: HYDROCORTISONE ACETATE
     Route: 048
  192. HYDROCORTISONE BUTYRATE [Concomitant]
     Active Substance: HYDROCORTISONE BUTYRATE
     Indication: Rheumatoid arthritis
     Route: 058
  193. HYDROCORTISONE SODIUM SUCCINATE [Concomitant]
     Active Substance: HYDROCORTISONE SODIUM SUCCINATE
     Indication: Rheumatoid arthritis
     Route: 030
  194. HYDROCORTISONE SODIUM SUCCINATE [Concomitant]
     Active Substance: HYDROCORTISONE SODIUM SUCCINATE
  195. HYDROXYCHLOROQUINE [Concomitant]
     Active Substance: HYDROXYCHLOROQUINE
     Indication: Rheumatoid arthritis
  196. HYDROXYCHLOROQUINE [Concomitant]
     Active Substance: HYDROXYCHLOROQUINE
     Route: 048
  197. HYDROXYCHLOROQUINE [Concomitant]
     Active Substance: HYDROXYCHLOROQUINE
     Route: 048
  198. HYDROXYCHLOROQUINE [Concomitant]
     Active Substance: HYDROXYCHLOROQUINE
     Route: 048
  199. HYDROXYCHLOROQUINE [Concomitant]
     Active Substance: HYDROXYCHLOROQUINE
     Route: 005
  200. HYDROXYCHLOROQUINE SULFATE [Concomitant]
     Active Substance: HYDROXYCHLOROQUINE SULFATE
     Indication: Systemic lupus erythematosus
     Dosage: USP
     Route: 058
  201. HYDROXYCHLOROQUINE SULFATE [Concomitant]
     Active Substance: HYDROXYCHLOROQUINE SULFATE
     Indication: Rheumatoid arthritis
     Dosage: USP
     Route: 048
  202. HYDROXYCHLOROQUINE SULFATE [Concomitant]
     Active Substance: HYDROXYCHLOROQUINE SULFATE
     Dosage: USP
     Route: 048
  203. HYDROXYCHLOROQUINE SULFATE [Concomitant]
     Active Substance: HYDROXYCHLOROQUINE SULFATE
     Dosage: USP
     Route: 048
  204. HYDROXYCHLOROQUINE SULFATE [Concomitant]
     Active Substance: HYDROXYCHLOROQUINE SULFATE
     Dosage: USP
     Route: 048
  205. HYDROXYCHLOROQUINE SULFATE [Concomitant]
     Active Substance: HYDROXYCHLOROQUINE SULFATE
     Dosage: USP
     Route: 048
  206. HYDROXYCHLOROQUINE SULFATE [Concomitant]
     Active Substance: HYDROXYCHLOROQUINE SULFATE
     Dosage: USP
     Route: 016
  207. IBUPROFEN [Concomitant]
     Active Substance: IBUPROFEN
     Indication: Product used for unknown indication
  208. INFLIXIMAB [Concomitant]
     Active Substance: INFLIXIMAB
     Indication: Rheumatoid arthritis
     Route: 042
  209. INFLIXIMAB [Concomitant]
     Active Substance: INFLIXIMAB
     Route: 042
  210. INFLIXIMAB [Concomitant]
     Active Substance: INFLIXIMAB
  211. ISOPROPYL ALCOHOL [Concomitant]
     Active Substance: ISOPROPYL ALCOHOL
     Indication: Product used for unknown indication
     Route: 061
  212. KEVZARA [Concomitant]
     Active Substance: SARILUMAB
     Indication: Rheumatoid arthritis
     Route: 003
  213. LANSOPRAZOLE [Concomitant]
     Active Substance: LANSOPRAZOLE
     Indication: Rheumatoid arthritis
     Route: 048
  214. LEFLUNOMIDE [Concomitant]
     Active Substance: LEFLUNOMIDE
     Indication: Rheumatoid arthritis
  215. LEFLUNOMIDE [Concomitant]
     Active Substance: LEFLUNOMIDE
  216. LEVOTHYROXINE SODIUM [Concomitant]
     Active Substance: LEVOTHYROXINE SODIUM
     Indication: Product used for unknown indication
  217. LISINOPRIL [Concomitant]
     Active Substance: LISINOPRIL
     Indication: Product used for unknown indication
  218. CLIOQUINOL\FLUMETHASONE [Concomitant]
     Active Substance: CLIOQUINOL\FLUMETHASONE
     Indication: Rheumatoid arthritis
  219. CLIOQUINOL\FLUMETHASONE [Concomitant]
     Active Substance: CLIOQUINOL\FLUMETHASONE
     Route: 003
  220. CLIOQUINOL\FLUMETHASONE [Concomitant]
     Active Substance: CLIOQUINOL\FLUMETHASONE
  221. LYRICA [Concomitant]
     Active Substance: PREGABALIN
     Indication: Product used for unknown indication
     Route: 048
  222. MAGNESIUM [Concomitant]
     Active Substance: MAGNESIUM
     Indication: Product used for unknown indication
  223. MAGNESIUM [Concomitant]
     Active Substance: MAGNESIUM
  224. MARVELON [Concomitant]
     Active Substance: DESOGESTREL\ETHINYL ESTRADIOL
     Indication: Product used for unknown indication
  225. MELOXICAM [Concomitant]
     Active Substance: MELOXICAM
     Indication: Product used for unknown indication
  226. MESALAMINE [Concomitant]
     Active Substance: MESALAMINE
     Indication: Crohn^s disease
  227. METHOTREXATE [Concomitant]
     Active Substance: METHOTREXATE
     Indication: Rheumatoid arthritis
  228. METHOTREXATE [Concomitant]
     Active Substance: METHOTREXATE
     Indication: Psoriatic arthropathy
     Route: 048
  229. METHOTREXATE [Concomitant]
     Active Substance: METHOTREXATE
     Route: 048
  230. METHOTREXATE [Concomitant]
     Active Substance: METHOTREXATE
     Route: 048
  231. METHOTREXATE [Concomitant]
     Active Substance: METHOTREXATE
     Route: 048
  232. METHOTREXATE [Concomitant]
     Active Substance: METHOTREXATE
     Route: 048
  233. METHOTREXATE [Concomitant]
     Active Substance: METHOTREXATE
     Route: 048
  234. METHOTREXATE [Concomitant]
     Active Substance: METHOTREXATE
  235. METHOTREXATE [Concomitant]
     Active Substance: METHOTREXATE
     Route: 016
  236. METHOTREXATE [Concomitant]
     Active Substance: METHOTREXATE
  237. METHOTREXATE SODIUM [Concomitant]
     Active Substance: METHOTREXATE SODIUM
     Indication: Rheumatoid arthritis
     Route: 016
  238. MORPHINE [Concomitant]
     Active Substance: MORPHINE
     Indication: Rheumatoid arthritis
     Route: 048
  239. MYCOPHENOLATE MOFETIL [Concomitant]
     Active Substance: MYCOPHENOLATE MOFETIL
     Indication: Rheumatoid arthritis
  240. NAPROXEN SODIUM [Concomitant]
     Active Substance: NAPROXEN SODIUM
     Indication: Rheumatoid arthritis
  241. NAPROXEN SODIUM [Concomitant]
     Active Substance: NAPROXEN SODIUM
  242. MYCOPHENOLATE MOFETIL [Concomitant]
     Active Substance: MYCOPHENOLATE MOFETIL
     Indication: Rheumatoid arthritis
  243. NEOMYCIN [Concomitant]
     Active Substance: NEOMYCIN
     Indication: Product used for unknown indication
  244. OTEZLA [Concomitant]
     Active Substance: APREMILAST
     Indication: Rheumatoid arthritis
     Route: 048
  245. OTEZLA [Concomitant]
     Active Substance: APREMILAST
     Route: 048
  246. OTEZLA [Concomitant]
     Active Substance: APREMILAST
  247. OTEZLA [Concomitant]
     Active Substance: APREMILAST
     Route: 042
  248. OTEZLA [Concomitant]
     Active Substance: APREMILAST
     Route: 048
  249. OTEZLA [Concomitant]
     Active Substance: APREMILAST
  250. ACETAMINOPHEN\OXYCODONE HYDROCHLORIDE [Concomitant]
     Active Substance: ACETAMINOPHEN\OXYCODONE HYDROCHLORIDE
     Indication: Rheumatoid arthritis
     Route: 048
  251. ACETAMINOPHEN\OXYCODONE HYDROCHLORIDE [Concomitant]
     Active Substance: ACETAMINOPHEN\OXYCODONE HYDROCHLORIDE
     Route: 058
  252. ACETAMINOPHEN\OXYCODONE HYDROCHLORIDE [Concomitant]
     Active Substance: ACETAMINOPHEN\OXYCODONE HYDROCHLORIDE
  253. PANTOPRAZOLE SODIUM [Concomitant]
     Active Substance: PANTOPRAZOLE SODIUM
     Indication: Rheumatoid arthritis
     Route: 048
  254. PANTOPRAZOLE [Concomitant]
     Active Substance: PANTOPRAZOLE
     Indication: Product used for unknown indication
     Route: 048
  255. PANTOPRAZOLE [Concomitant]
     Active Substance: PANTOPRAZOLE
  256. PANTOPRAZOLE [Concomitant]
     Active Substance: PANTOPRAZOLE
     Route: 016
  257. PANTOPRAZOLE SODIUM ANHYDROUS [Concomitant]
     Active Substance: PANTOPRAZOLE SODIUM ANHYDROUS
     Indication: Product used for unknown indication
  258. ACETAMINOPHEN\OXYCODONE HYDROCHLORIDE\OXYCODONE TEREPHTHALATE [Concomitant]
     Active Substance: ACETAMINOPHEN\OXYCODONE HYDROCHLORIDE\OXYCODONE TEREPHTHALATE
     Indication: Rheumatoid arthritis
     Route: 048
  259. ACETAMINOPHEN\OXYCODONE HYDROCHLORIDE\OXYCODONE TEREPHTHALATE [Concomitant]
     Active Substance: ACETAMINOPHEN\OXYCODONE HYDROCHLORIDE\OXYCODONE TEREPHTHALATE
     Route: 058
  260. PERIOGARD [Concomitant]
     Active Substance: CHLORHEXIDINE GLUCONATE
     Indication: Product used for unknown indication
     Route: 002
  261. PERIOGARD [Concomitant]
     Active Substance: CHLORHEXIDINE GLUCONATE
     Route: 048
  262. PERIOGARD [Concomitant]
     Active Substance: CHLORHEXIDINE GLUCONATE
  263. PHTHALYLSULFATHIAZOLE [Concomitant]
     Active Substance: PHTHALYLSULFATHIAZOLE
     Indication: Rheumatoid arthritis
     Route: 048
  264. PHTHALYLSULFATHIAZOLE [Concomitant]
     Active Substance: PHTHALYLSULFATHIAZOLE
  265. PHTHALYLSULFATHIAZOLE [Concomitant]
     Active Substance: PHTHALYLSULFATHIAZOLE
     Route: 048
  266. PHTHALYLSULFATHIAZOLE [Concomitant]
     Active Substance: PHTHALYLSULFATHIAZOLE
     Route: 016
  267. PHTHALYLSULFATHIAZOLE [Concomitant]
     Active Substance: PHTHALYLSULFATHIAZOLE
     Route: 048
  268. PHTHALYLSULFATHIAZOLE [Concomitant]
     Active Substance: PHTHALYLSULFATHIAZOLE
     Route: 058
  269. PHTHALYLSULFATHIAZOLE [Concomitant]
     Active Substance: PHTHALYLSULFATHIAZOLE
     Route: 005
  270. PIROXICAM [Concomitant]
     Active Substance: PIROXICAM
     Indication: Product used for unknown indication
  271. HYDROXYCHLOROQUINE DIPHOSPHATE [Concomitant]
     Active Substance: HYDROXYCHLOROQUINE DIPHOSPHATE
     Indication: Rheumatoid arthritis
     Route: 005
  272. HYDROXYCHLOROQUINE DIPHOSPHATE [Concomitant]
     Active Substance: HYDROXYCHLOROQUINE DIPHOSPHATE
  273. HYDROXYCHLOROQUINE DIPHOSPHATE [Concomitant]
     Active Substance: HYDROXYCHLOROQUINE DIPHOSPHATE
  274. PREDNISOLONE [Concomitant]
     Active Substance: PREDNISOLONE
     Indication: Product used for unknown indication
  275. PREDNISONE [Concomitant]
     Active Substance: PREDNISONE
     Indication: Rheumatoid arthritis
     Route: 048
  276. PREDNISONE [Concomitant]
     Active Substance: PREDNISONE
     Indication: Condition aggravated
     Route: 048
  277. PREDNISONE [Concomitant]
     Active Substance: PREDNISONE
     Indication: Arthralgia
     Route: 048
  278. PREDNISONE [Concomitant]
     Active Substance: PREDNISONE
     Route: 048
  279. PREDNISONE [Concomitant]
     Active Substance: PREDNISONE
     Route: 048
  280. PREDNISONE [Concomitant]
     Active Substance: PREDNISONE
     Route: 016
  281. PREDNISONE [Concomitant]
     Active Substance: PREDNISONE
  282. PREDNISONE [Concomitant]
     Active Substance: PREDNISONE
  283. PREGABALIN [Concomitant]
     Active Substance: PREGABALIN
     Indication: Rheumatoid arthritis
  284. PREVACID [Concomitant]
     Active Substance: LANSOPRAZOLE
     Indication: Product used for unknown indication
     Route: 048
  285. PRINIVIL [Concomitant]
     Active Substance: LISINOPRIL
     Indication: Product used for unknown indication
  286. PSEUDOEPHEDRINE [Concomitant]
     Active Substance: PSEUDOEPHEDRINE
     Indication: Rheumatoid arthritis
  287. PSEUDOEPHEDRINE [Concomitant]
     Active Substance: PSEUDOEPHEDRINE
  288. PSEUDOEPHEDRINE [Concomitant]
     Active Substance: PSEUDOEPHEDRINE
  289. PSEUDOEPHEDRINE [Concomitant]
     Active Substance: PSEUDOEPHEDRINE
  290. PSEUDOEPHEDRINE [Concomitant]
     Active Substance: PSEUDOEPHEDRINE
     Route: 048
  291. QUETIAPINE [Concomitant]
     Active Substance: QUETIAPINE
     Indication: Product used for unknown indication
  292. QUETIAPINE FUMARATE [Concomitant]
     Active Substance: QUETIAPINE FUMARATE
     Indication: Product used for unknown indication
  293. RAMIPRIL [Concomitant]
     Active Substance: RAMIPRIL
     Indication: Product used for unknown indication
     Route: 016
  294. CETIRIZINE HYDROCHLORIDE [Concomitant]
     Active Substance: CETIRIZINE HYDROCHLORIDE
     Indication: Rheumatoid arthritis
     Route: 048
  295. CETIRIZINE HYDROCHLORIDE [Concomitant]
     Active Substance: CETIRIZINE HYDROCHLORIDE
  296. CETIRIZINE HYDROCHLORIDE [Concomitant]
     Active Substance: CETIRIZINE HYDROCHLORIDE
     Route: 048
  297. CETIRIZINE HYDROCHLORIDE [Concomitant]
     Active Substance: CETIRIZINE HYDROCHLORIDE
     Route: 048
  298. CETIRIZINE HYDROCHLORIDE [Concomitant]
     Active Substance: CETIRIZINE HYDROCHLORIDE
     Route: 048
  299. CETIRIZINE HYDROCHLORIDE [Concomitant]
     Active Substance: CETIRIZINE HYDROCHLORIDE
  300. CETIRIZINE HYDROCHLORIDE [Concomitant]
     Active Substance: CETIRIZINE HYDROCHLORIDE
     Route: 016
  301. REMICADE [Concomitant]
     Active Substance: INFLIXIMAB
     Indication: Rheumatoid arthritis
     Route: 042
  302. REMICADE [Concomitant]
     Active Substance: INFLIXIMAB
     Route: 042
  303. REMICADE [Concomitant]
     Active Substance: INFLIXIMAB
     Route: 042
  304. RISEDRONATE SODIUM [Concomitant]
     Active Substance: RISEDRONATE SODIUM
     Indication: Product used for unknown indication
  305. RITUXIMAB [Concomitant]
     Active Substance: RITUXIMAB
     Indication: Rheumatoid arthritis
  306. RITUXIMAB [Concomitant]
     Active Substance: RITUXIMAB
  307. RITUXIMAB [Concomitant]
     Active Substance: RITUXIMAB
     Route: 058
  308. RITUXIMAB [Concomitant]
     Active Substance: RITUXIMAB
     Route: 016
  309. RITUXIMAB [Concomitant]
     Active Substance: RITUXIMAB
     Route: 042
  310. DIETARY SUPPLEMENT\HERBALS [Concomitant]
     Active Substance: DIETARY SUPPLEMENT\HERBALS
     Indication: Product used for unknown indication
  311. DIETARY SUPPLEMENT\HERBALS [Concomitant]
     Active Substance: DIETARY SUPPLEMENT\HERBALS
     Route: 067
  312. DIETARY SUPPLEMENT [Concomitant]
     Active Substance: DIETARY SUPPLEMENT
     Indication: Product used for unknown indication
  313. SULFASALAZINE [Concomitant]
     Active Substance: SULFASALAZINE
     Indication: Product used for unknown indication
  314. ALBUTEROL [Concomitant]
     Active Substance: ALBUTEROL
     Indication: Product used for unknown indication
  315. PREDNISONE [Concomitant]
     Active Substance: PREDNISONE
     Indication: Rheumatoid arthritis
     Route: 048
  316. SIMPONI [Concomitant]
     Active Substance: GOLIMUMAB
     Indication: Rheumatoid arthritis
     Route: 048
  317. SIMPONI [Concomitant]
     Active Substance: GOLIMUMAB
     Indication: Psoriatic arthropathy
     Route: 052
  318. SIMPONI [Concomitant]
     Active Substance: GOLIMUMAB
     Route: 042
  319. SIMPONI [Concomitant]
     Active Substance: GOLIMUMAB
     Route: 058
  320. SIMPONI [Concomitant]
     Active Substance: GOLIMUMAB
     Route: 048
  321. SIMPONI [Concomitant]
     Active Substance: GOLIMUMAB
  322. SIMPONI [Concomitant]
     Active Substance: GOLIMUMAB
     Route: 058
  323. STELARA [Concomitant]
     Active Substance: USTEKINUMAB
     Indication: Product used for unknown indication
     Route: 058
  324. STELARA [Concomitant]
     Active Substance: USTEKINUMAB
  325. SULFAMETHOXAZOLE [Concomitant]
     Active Substance: SULFAMETHOXAZOLE
     Indication: Rheumatoid arthritis
  326. SULFAMETHOXAZOLE AND TRIMETHOPRIM [Concomitant]
     Active Substance: SULFAMETHOXAZOLE\TRIMETHOPRIM
     Indication: Product used for unknown indication
     Route: 067
  327. SULFASALAZINE [Concomitant]
     Active Substance: SULFASALAZINE
     Indication: Rheumatoid arthritis
     Route: 048
  328. SULFASALAZINE [Concomitant]
     Active Substance: SULFASALAZINE
     Route: 048
  329. SULFASALAZINE [Concomitant]
     Active Substance: SULFASALAZINE
     Route: 048
  330. SULFASALAZINE [Concomitant]
     Active Substance: SULFASALAZINE
     Route: 048
  331. SULFASALAZINE [Concomitant]
     Active Substance: SULFASALAZINE
     Route: 048
  332. SULFASALAZINE [Concomitant]
     Active Substance: SULFASALAZINE
     Route: 048
  333. SULFASALAZINE [Concomitant]
     Active Substance: SULFASALAZINE
  334. SULFASALAZINE [Concomitant]
     Active Substance: SULFASALAZINE
     Route: 048
  335. SULFASALAZINE [Concomitant]
     Active Substance: SULFASALAZINE
     Route: 048
  336. SULFASALAZINE [Concomitant]
     Active Substance: SULFASALAZINE
     Route: 016
  337. SULFASALAZINE [Concomitant]
     Active Substance: SULFASALAZINE
     Route: 048
  338. SULFASALAZINE [Concomitant]
     Active Substance: SULFASALAZINE
     Route: 048
  339. SULFASALAZINE [Concomitant]
     Active Substance: SULFASALAZINE
     Route: 048
  340. SULFASALAZINE [Concomitant]
     Active Substance: SULFASALAZINE
     Route: 058
  341. SULFASALAZINE [Concomitant]
     Active Substance: SULFASALAZINE
     Route: 048
  342. AMINOSALICYLIC ACID [Concomitant]
     Active Substance: AMINOSALICYLIC ACID
     Indication: Product used for unknown indication
  343. XELJANZ [Concomitant]
     Active Substance: TOFACITINIB CITRATE
     Indication: Rheumatoid arthritis
  344. XELJANZ [Concomitant]
     Active Substance: TOFACITINIB CITRATE
     Route: 048
  345. XELJANZ [Concomitant]
     Active Substance: TOFACITINIB CITRATE
     Route: 048
  346. XELJANZ [Concomitant]
     Active Substance: TOFACITINIB CITRATE
     Route: 048
  347. XELJANZ [Concomitant]
     Active Substance: TOFACITINIB CITRATE
     Route: 048
  348. XELJANZ [Concomitant]
     Active Substance: TOFACITINIB CITRATE
     Dosage: 5 GRAIN
     Route: 048
  349. ZESTRIL [Concomitant]
     Active Substance: LISINOPRIL
     Indication: Product used for unknown indication
  350. ZOPICLONE [Concomitant]
     Active Substance: ZOPICLONE
     Indication: Product used for unknown indication

REACTIONS (1)
  - Death [Fatal]
